FAERS Safety Report 9300745 (Version 1)
Quarter: 2013Q2

REPORT INFORMATION
  Report Type: Spontaneous
  Country: US (occurrence: None)
  Receive Date: 20130520
  Receipt Date: 20130520
  Transmission Date: 20140414
  Serious: Yes (Other)
  Sender: FDA-Public Use
  Company Number: None

PATIENT
  Age: 11 Year
  Sex: Male
  Weight: 47 kg

DRUGS (1)
  1. ETOPOSIDE [Suspect]
     Indication: HODGKIN^S DISEASE
     Dosage: IV BOLUS
     Route: 042
     Dates: start: 20130423, end: 20130424

REACTIONS (1)
  - Respiratory disorder [None]
